FAERS Safety Report 6551358-9 (Version None)
Quarter: 2010Q1

REPORT INFORMATION
  Report Type: 
  Country: None (occurrence: None)
  Receive Date: 20100126
  Receipt Date: 20100119
  Transmission Date: 20100710
  Serious: Yes (Hospitalization)
  Sender: FDA-Public Use
  Company Number: FR-WYE-G05371310

PATIENT
  Sex: Male

DRUGS (4)
  1. EFFEXOR [Suspect]
     Dosage: UNKNOWN
     Route: 048
     Dates: end: 20090510
  2. PARIET [Suspect]
     Indication: PROPHYLAXIS AGAINST GASTROINTESTINAL ULCER
     Dosage: UNKNOWN
     Route: 048
     Dates: end: 20090508
  3. RIVOTRIL [Suspect]
     Dosage: UNKNOWN
     Route: 048
     Dates: start: 20090101, end: 20090510
  4. MEDIATOR [Suspect]
     Dosage: UNKNOWN
     Route: 048
     Dates: start: 20090128, end: 20090510

REACTIONS (1)
  - PANCREATITIS ACUTE [None]
